FAERS Safety Report 23089364 (Version 2)
Quarter: 2024Q3

REPORT INFORMATION
  Report Type: Spontaneous
  Country: IE (occurrence: IE)
  Receive Date: 20231020
  Receipt Date: 20240729
  Transmission Date: 20241017
  Serious: Yes (Death)
  Sender: IPSEN
  Company Number: IE-IPSEN Group, Research and Development-2023-23981

PATIENT
  Sex: Male

DRUGS (1)
  1. TAZEMETOSTAT HYDROBROMIDE [Suspect]
     Active Substance: TAZEMETOSTAT HYDROBROMIDE
     Indication: Product used for unknown indication
     Dosage: 2G AND 7G
     Route: 065

REACTIONS (1)
  - Illness [Fatal]
